FAERS Safety Report 9025343 (Version 1)
Quarter: 2012Q4

REPORT INFORMATION
  Report Type: 
  Country: BR (occurrence: BR)
  Receive Date: 20121211
  Receipt Date: 20121211
  Transmission Date: 20130627
  Serious: Yes (Other)
  Sender: FDA-Public Use
  Company Number: PHHY2012BR096549

PATIENT
  Sex: Female

DRUGS (1)
  1. DIOVAN AMLO FIX [Suspect]
     Indication: HYPERTENSION
     Dosage: 1 DF, once (valsartan 320mg and amlodipine 12.5mg) a day
     Route: 048

REACTIONS (2)
  - Nuchal rigidity [Recovered/Resolved]
  - Drug ineffective [Recovered/Resolved]
